FAERS Safety Report 8262592-4 (Version None)
Quarter: 2012Q2

REPORT INFORMATION
  Report Type: 
  Country: None (occurrence: None)
  Receive Date: 20120405
  Receipt Date: 20120327
  Transmission Date: 20120825
  Serious: Yes (Hospitalization, Other)
  Sender: FDA-Public Use
  Company Number: US-JNJFOC-20120313621

PATIENT
  Sex: Female
  Weight: 61.24 kg

DRUGS (9)
  1. TRAMADOL HCL [Interacting]
     Indication: PAIN
     Route: 065
  2. XANAX [Concomitant]
     Indication: ANXIETY
     Dosage: TWO TO THREE TIMES A DAY IF NEEDED, FOR 10 YEARS
     Route: 048
     Dates: start: 20020101
  3. CELEBREX [Suspect]
     Indication: ARTHRITIS
     Dosage: UP TO THREE TIMES A DAY IF NEEDED
     Route: 048
  4. FLUOXETINE [Interacting]
     Indication: DEPRESSION
     Dosage: FOR 15 YEARS
     Route: 065
     Dates: start: 19970101
  5. AMITRIPTYLINE HCL [Concomitant]
     Indication: PAIN
     Dosage: AT BEDTIME
     Route: 065
  6. AMITRIPTYLINE HCL [Concomitant]
     Indication: DEPRESSION
     Dosage: AT BEDTIME
     Route: 065
  7. SIMVASTATIN [Concomitant]
     Indication: BLOOD CHOLESTEROL INCREASED
     Route: 065
     Dates: start: 20110601
  8. LYRICA [Suspect]
     Indication: FIBROMYALGIA
     Dosage: COUPLE OF YEARS
     Route: 048
  9. BENADRYL [Suspect]
     Indication: PRODUCT USED FOR UNKNOWN INDICATION
     Route: 065

REACTIONS (3)
  - CONVULSION [None]
  - DRUG INTERACTION [None]
  - ULCER HAEMORRHAGE [None]
